FAERS Safety Report 20946424 (Version 1)
Quarter: 2022Q2

REPORT INFORMATION
  Report Type: Spontaneous
  Country: CN (occurrence: CN)
  Receive Date: 20220610
  Receipt Date: 20220610
  Transmission Date: 20220721
  Serious: Yes (Other)
  Sender: FDA-Public Use
  Company Number: CN-009507513-2206CHN000959

PATIENT
  Age: 54 Year
  Sex: Female
  Weight: 45 kg

DRUGS (4)
  1. CILASTATIN SODIUM\IMIPENEM [Suspect]
     Active Substance: CILASTATIN SODIUM\IMIPENEM
     Indication: Anti-infective therapy
     Dosage: 1 GRAM, Q6H
     Route: 041
     Dates: start: 20220504, end: 20220508
  2. CILASTATIN SODIUM\IMIPENEM [Suspect]
     Active Substance: CILASTATIN SODIUM\IMIPENEM
     Dosage: 1 GRAM, Q8H
     Route: 041
     Dates: start: 20220508
  3. SODIUM CHLORIDE [Suspect]
     Active Substance: SODIUM CHLORIDE
     Indication: Medication dilution
     Dosage: 150 ML, Q6H
     Route: 041
     Dates: start: 20220504, end: 20220508
  4. SODIUM CHLORIDE [Suspect]
     Active Substance: SODIUM CHLORIDE
     Dosage: 150 ML, Q8H
     Route: 041
     Dates: start: 20220508

REACTIONS (5)
  - Unresponsive to stimuli [Unknown]
  - Disorganised speech [Recovering/Resolving]
  - Restlessness [Recovered/Resolved]
  - Hallucination [Recovered/Resolved]
  - Nervous system disorder [Unknown]

NARRATIVE: CASE EVENT DATE: 20220508
